FAERS Safety Report 8117796-8 (Version None)
Quarter: 2012Q1

REPORT INFORMATION
  Report Type: 
  Country: None (occurrence: None)
  Receive Date: 20120131
  Receipt Date: 20110511
  Transmission Date: 20120608
  Serious: Yes (Other)
  Sender: FDA-Public Use
  Company Number: 2011002288

PATIENT
  Age: 35 Year
  Sex: Female

DRUGS (3)
  1. ERYTHROMYCIN [Suspect]
     Indication: ROSACEA
     Dosage: (2 GM) ORAL
     Route: 048
  2. PREDNISOLONE [Suspect]
     Dosage: (30 MG)
  3. DIAZEPAM [Suspect]

REACTIONS (9)
  - TEARFULNESS [None]
  - ANXIETY [None]
  - AGITATION [None]
  - ABORTION INDUCED [None]
  - SCAR [None]
  - TELANGIECTASIA [None]
  - MATERNAL EXPOSURE DURING PREGNANCY [None]
  - DEPRESSION [None]
  - DRUG INEFFECTIVE [None]
